FAERS Safety Report 21440480 (Version 1)
Quarter: 2022Q4

REPORT INFORMATION
  Report Type: Spontaneous
  Country: US (occurrence: US)
  Receive Date: 20221011
  Receipt Date: 20221011
  Transmission Date: 20230112
  Serious: Yes (Other)
  Sender: FDA-Public Use
  Company Number: US-SAOL THERAPEUTICS-2017SAO00527

PATIENT
  Age: 41 Year
  Sex: Male

DRUGS (1)
  1. BACLOFEN [Suspect]
     Active Substance: BACLOFEN
     Indication: Product used for unknown indication
     Dosage: 386 MCG/DAY
     Route: 037

REACTIONS (8)
  - Drug withdrawal syndrome [Recovered/Resolved]
  - Muscle spasticity [Recovered/Resolved]
  - Urinary retention [Recovering/Resolving]
  - Muscle spasms [Recovered/Resolved]
  - Urinary incontinence [Recovered/Resolved]
  - Migraine [Recovered/Resolved]
  - Urinary tract infection [Recovered/Resolved]
  - Complication associated with device [Recovered/Resolved]

NARRATIVE: CASE EVENT DATE: 20160301
